FAERS Safety Report 5296330-4 (Version None)
Quarter: 2007Q2

REPORT INFORMATION
  Report Type: 
  Country: None (occurrence: None)
  Receive Date: 20070413
  Receipt Date: 20070403
  Transmission Date: 20071010
  Serious: Yes (Disabling)
  Sender: FDA-Public Use
  Company Number: 2007CG00564

PATIENT
  Age: 73 Year
  Sex: Female

DRUGS (1)
  1. ARIMIDEX [Suspect]
     Indication: BREAST CANCER FEMALE
     Route: 048
     Dates: start: 20040301

REACTIONS (4)
  - AMYOTROPHY [None]
  - ASTHENIA [None]
  - DIZZINESS [None]
  - MYALGIA [None]
